FAERS Safety Report 10009930 (Version 1)
Quarter: 2014Q1

REPORT INFORMATION
  Report Type: Spontaneous
  Country: US (occurrence: US)
  Receive Date: 20140312
  Receipt Date: 20140312
  Transmission Date: 20141002
  Serious: No
  Sender: FDA-Public Use
  Company Number: US-INCYTE CORPORATION-2013IN000627

PATIENT
  Sex: Female

DRUGS (4)
  1. JAKAFI [Suspect]
     Indication: MYELOFIBROSIS
     Dosage: 10 MG, BID
     Route: 048
     Dates: start: 20120709
  2. PROCRIT [Suspect]
     Indication: ANAEMIA
     Dosage: 40.000 (UNITS NOT SPECIFIED), UNK
     Route: 065
  3. ARANESP [Concomitant]
     Indication: ANAEMIA
     Dosage: 200 MCG, UNK
  4. OXYGEN [Concomitant]

REACTIONS (3)
  - Fatigue [Unknown]
  - Dyspnoea [Unknown]
  - Anaemia [Unknown]
